FAERS Safety Report 10522837 (Version 2)
Quarter: 2014Q4

REPORT INFORMATION
  Report Type: Spontaneous
  Country: BE (occurrence: None)
  Receive Date: 20141010
  Receipt Date: 20141015
  Transmission Date: 20150528
  Serious: Yes (Death)
  Sender: FDA-Public Use
  Company Number: KAD201410-001206

PATIENT
  Age: 53 Year
  Sex: Male
  Weight: 62.6 kg

DRUGS (11)
  1. CITALOPRAM (CITALOPRAM) [Concomitant]
     Active Substance: CITALOPRAM HYDROBROMIDE
  2. TRUVADA [Concomitant]
     Active Substance: EMTRICITABINE\TENOFOVIR DISOPROXIL FUMARATE
  3. INTELENCE (ETRAVIRINE) [Concomitant]
  4. PEGINTERFERON LAMBDA [Suspect]
     Active Substance: PEGINTERFERON LAMBDA-1A
     Indication: HEPATITIS C
     Dosage: WEEKLY
     Route: 058
     Dates: start: 20131025, end: 20140919
  5. DACLATASVIR [Suspect]
     Active Substance: DACLATASVIR
     Indication: HEPATITIS C
     Route: 048
     Dates: start: 20131025, end: 20140213
  6. RALTEGREVIR (RALTEGREVIR) [Concomitant]
  7. MAGNESIUM (MAGNESIUM) [Concomitant]
     Active Substance: MAGNESIUM
  8. ERTRAVIRINE (ERTRAVIRINE) [Concomitant]
  9. OMEPRAZOLE (OMEPRAZOLE) [Concomitant]
     Active Substance: OMEPRAZOLE
  10. RIBAVIRIN (RIBAVIRIN) [Suspect]
     Active Substance: RIBAVIRIN
     Indication: HEPATITIS C
     Route: 048
     Dates: start: 20131025, end: 20140919
  11. IBUPROFEN (IBUPROFEN) [Concomitant]
     Active Substance: IBUPROFEN

REACTIONS (8)
  - Gait disturbance [None]
  - Sudden death [None]
  - Groin pain [None]
  - Decreased appetite [None]
  - Arthralgia [None]
  - Vomiting [None]
  - Cardiac failure [None]
  - Secondary syphilis [None]

NARRATIVE: CASE EVENT DATE: 20140926
